FAERS Safety Report 9723722 (Version 1)
Quarter: 2013Q4

REPORT INFORMATION
  Report Type: Spontaneous
  Country: US (occurrence: US)
  Receive Date: 20131202
  Receipt Date: 20131202
  Transmission Date: 20140711
  Serious: Yes (Other)
  Sender: FDA-Public Use
  Company Number: US-PFIZER INC-2013339302

PATIENT
  Age: 7 Decade
  Sex: Female

DRUGS (3)
  1. LIPITOR [Suspect]
     Dosage: UNK
  2. BAYCOL [Suspect]
     Dosage: UNK
  3. ZOCOR [Suspect]
     Dosage: UNK

REACTIONS (3)
  - Haemorrhage [Unknown]
  - Drug hypersensitivity [Unknown]
  - Rash [Unknown]
